FAERS Safety Report 9236881 (Version 2)
Quarter: 2013Q3

REPORT INFORMATION
  Report Type: Spontaneous
  Country: CA (occurrence: CA)
  Receive Date: 20130417
  Receipt Date: 20130711
  Transmission Date: 20140515
  Serious: Yes (Disabling, Other)
  Sender: FDA-Public Use
  Company Number: GB-ASTRAZENECA-2012SE49231

PATIENT
  Age: 75 Year
  Sex: Male

DRUGS (8)
  1. ZOLADEX [Suspect]
     Indication: PROSTATE CANCER
     Route: 058
     Dates: start: 20100712
  2. ZOLADEX [Suspect]
     Indication: PROSTATE CANCER
     Route: 058
     Dates: start: 20101004
  3. ZOLADEX [Suspect]
     Indication: PROSTATE CANCER
     Route: 058
     Dates: start: 20110104
  4. ZOLADEX [Suspect]
     Indication: PROSTATE CANCER
     Route: 058
     Dates: start: 20110704, end: 201110
  5. BICALUTAMIDE [Suspect]
     Dosage: DAILY
     Route: 065
     Dates: start: 20100712
  6. MULTIVITAMIN [Concomitant]
     Dosage: DAILY
  7. CALCIUM [Concomitant]
     Dosage: DAILY
  8. VITAMIN D [Concomitant]
     Dosage: DAILY

REACTIONS (35)
  - Dyspnoea [Not Recovered/Not Resolved]
  - Respiratory muscle weakness [Unknown]
  - Syncope [Unknown]
  - Dyspnoea [Unknown]
  - Balance disorder [Not Recovered/Not Resolved]
  - Fatigue [Not Recovered/Not Resolved]
  - Asthenia [Not Recovered/Not Resolved]
  - Confusional state [Not Recovered/Not Resolved]
  - Blood pressure fluctuation [Unknown]
  - Condition aggravated [Not Recovered/Not Resolved]
  - Headache [Unknown]
  - Gait disturbance [Unknown]
  - Fall [Unknown]
  - Memory impairment [Unknown]
  - Dysarthria [Not Recovered/Not Resolved]
  - Myalgia [Unknown]
  - Vomiting [Unknown]
  - Gastrooesophageal reflux disease [Unknown]
  - Dysuria [Unknown]
  - Muscle spasms [Unknown]
  - Cough [Not Recovered/Not Resolved]
  - Visual impairment [Not Recovered/Not Resolved]
  - Cognitive disorder [Not Recovered/Not Resolved]
  - Stress [Not Recovered/Not Resolved]
  - Muscle spasms [Unknown]
  - Injection site bruising [Unknown]
  - Unevaluable event [Unknown]
  - Dizziness [Not Recovered/Not Resolved]
  - Nausea [Unknown]
  - Abdominal pain upper [Unknown]
  - Injection site pain [Unknown]
  - Arthralgia [Unknown]
  - Hypertension [Unknown]
  - Anxiety [Unknown]
  - Gynaecomastia [Unknown]
